FAERS Safety Report 7070747-X (Version None)
Quarter: 2010Q4

REPORT INFORMATION
  Report Type: 
  Country: None (occurrence: None)
  Receive Date: 20101029
  Receipt Date: 20101006
  Transmission Date: 20110411
  Serious: Yes (Hospitalization)
  Sender: FDA-Public Use
  Company Number: US-BAYER-201037910NA

PATIENT
  Age: 29 Year
  Sex: Female
  Weight: 57 kg

DRUGS (8)
  1. YAZ [Suspect]
     Indication: CONTRACEPTION
     Dosage: 1 TABLETT/DAY
     Dates: start: 20080508, end: 20100501
  2. IRON [Concomitant]
     Indication: ANAEMIA
  3. TUMS [Concomitant]
     Indication: ABDOMINAL DISTENSION
  4. NEXIUM [Concomitant]
     Indication: ABDOMINAL PAIN UPPER
  5. ACETAMINOPHEN [Concomitant]
     Indication: PAIN
  6. ADVIL [Concomitant]
     Indication: PAIN
  7. INTRAVENOUS ANTIBIOTICS [Concomitant]
  8. ULTRAM [Concomitant]
     Indication: PAIN

REACTIONS (3)
  - ABDOMINAL PAIN UPPER [None]
  - BILE DUCT STONE [None]
  - CHOLECYSTITIS CHRONIC [None]
